FAERS Safety Report 6154071-5 (Version None)
Quarter: 2009Q2

REPORT INFORMATION
  Report Type: 
  Country: None (occurrence: None)
  Receive Date: 20090414
  Receipt Date: 20090331
  Transmission Date: 20091009
  Serious: Yes (Other)
  Sender: FDA-Public Use
  Company Number: CA-ROCHE-585101

PATIENT
  Sex: Male
  Weight: 90 kg

DRUGS (2)
  1. PEG-INTERFERON ALFA 2A (RO 25-8310) [Suspect]
     Dosage: DOSAGE FORM REPORTED AS PEN
     Route: 058
     Dates: start: 20080729, end: 20080828
  2. RIBAVIRIN [Suspect]
     Route: 048
     Dates: start: 20080729, end: 20080828

REACTIONS (1)
  - ABORTION SPONTANEOUS [None]
